FAERS Safety Report 5802348-2 (Version None)
Quarter: 2008Q3

REPORT INFORMATION
  Report Type: 
  Country: None (occurrence: None)
  Receive Date: 20080707
  Receipt Date: 20080616
  Transmission Date: 20090109
  Serious: No
  Sender: FDA-Public Use
  Company Number: US-BOEHRINGER INGELHEIM GMBH, GERMANY-2008-BP-07286BP

PATIENT
  Age: 64 Year
  Sex: Male

DRUGS (6)
  1. FLOMAX [Suspect]
     Indication: BENIGN PROSTATIC HYPERPLASIA
     Route: 048
     Dates: start: 20020101
  2. LUNESTA [Concomitant]
  3. ARTHROTEC [Concomitant]
  4. PARAFON FORTE [Concomitant]
  5. SAW PALMETTO [Concomitant]
  6. SUPPLEMENTS MULTIPLE [Concomitant]

REACTIONS (2)
  - DRUG EFFECT DECREASED [None]
  - SEMEN VOLUME DECREASED [None]
